FAERS Safety Report 4529923-X (Version None)
Quarter: 2004Q4

REPORT INFORMATION
  Report Type: 
  Country: None (occurrence: None)
  Receive Date: 20041215
  Receipt Date: 20041215
  Transmission Date: 20050328
  Serious: Yes (Disabling)
  Sender: FDA-Public Use
  Company Number: None

PATIENT
  Age: 69 Year
  Sex: Male

DRUGS (2)
  1. MOBIC [Suspect]
     Indication: TENDONITIS
     Dosage: 15 MG PO QD
     Route: 048
     Dates: start: 20041113
  2. MOBIC [Suspect]
     Indication: TENDONITIS
     Dosage: 15 MG PO QD
     Route: 048
     Dates: start: 20041123

REACTIONS (4)
  - DIPLOPIA [None]
  - GLOSSODYNIA [None]
  - ORAL MUCOSAL DISORDER [None]
  - STOMATITIS [None]
